FAERS Safety Report 23621763 (Version 1)
Quarter: 2024Q1

REPORT INFORMATION
  Report Type: Spontaneous
  Country: US (occurrence: None)
  Receive Date: 20240311
  Receipt Date: 20240311
  Transmission Date: 20240410
  Serious: Yes (Other)
  Sender: FDA-Public Use
  Company Number: None

PATIENT
  Sex: Male

DRUGS (1)
  1. PHOSPHOLINE IODIDE OPHTHALMIC [Suspect]
     Active Substance: ECHOTHIOPHATE IODIDE
     Indication: Pigmentary glaucoma
     Dosage: OTHER QUANTITY : 1 DROP;?FREQUENCY : TWICE A DAY;?
     Route: 047
     Dates: start: 20230426

REACTIONS (1)
  - Neoplasm malignant [None]
